FAERS Safety Report 7703901-1 (Version None)
Quarter: 2011Q3

REPORT INFORMATION
  Report Type: 
  Country: None (occurrence: None)
  Receive Date: 20110823
  Receipt Date: 20110812
  Transmission Date: 20111222
  Serious: Yes (Hospitalization, Other)
  Sender: FDA-Public Use
  Company Number: US-ROCHE-751320

PATIENT
  Sex: Male
  Weight: 59 kg

DRUGS (12)
  1. ACCUTANE [Suspect]
     Route: 048
     Dates: start: 20010622, end: 20020304
  2. ACCUTANE [Suspect]
     Route: 048
     Dates: start: 20020304, end: 20020416
  3. ACCUTANE [Suspect]
     Route: 048
     Dates: start: 20020416, end: 20030714
  4. AMNESTEEM [Suspect]
     Route: 048
     Dates: start: 20060221, end: 20060803
  5. ACCUTANE [Suspect]
     Route: 048
     Dates: start: 20010216, end: 20010622
  6. AMNESTEEM [Suspect]
     Indication: ACNE
     Route: 048
     Dates: start: 20030715, end: 20040301
  7. TYLENOL-500 [Concomitant]
  8. ACCUTANE [Suspect]
     Route: 048
     Dates: start: 20040227, end: 20040527
  9. AMNESTEEM [Suspect]
     Route: 048
     Dates: start: 20051026, end: 20060221
  10. ACCUTANE [Suspect]
     Route: 048
     Dates: start: 19990908, end: 20010216
  11. AMNESTEEM [Suspect]
     Route: 048
     Dates: start: 20040527, end: 20051026
  12. ACCUTANE [Suspect]
     Indication: ACNE
     Route: 048
     Dates: start: 19990301, end: 19990701

REACTIONS (7)
  - INFLAMMATORY BOWEL DISEASE [None]
  - ABDOMINAL ABSCESS [None]
  - HERPES ZOSTER [None]
  - COLON INJURY [None]
  - CROHN'S DISEASE [None]
  - COLITIS ULCERATIVE [None]
  - CLOSTRIDIUM DIFFICILE COLITIS [None]
